FAERS Safety Report 7238297-5 (Version None)
Quarter: 2011Q1

REPORT INFORMATION
  Report Type: 
  Country: None (occurrence: None)
  Receive Date: 20110121
  Receipt Date: 20110110
  Transmission Date: 20110831
  Serious: Yes (Hospitalization)
  Sender: FDA-Public Use
  Company Number: FR-SANOFI-AVENTIS-2011SA002157

PATIENT
  Age: 56 Year
  Sex: Male
  Weight: 105 kg

DRUGS (9)
  1. SERUM PHYSIOLOGICAL [Concomitant]
  2. PERINDOPRIL [Suspect]
  3. LEXOMIL [Suspect]
  4. LASIX [Suspect]
  5. VITAMIN B6 [Suspect]
  6. VITAMIN B1 TAB [Suspect]
  7. LASIX [Suspect]
  8. ADVIL [Suspect]
  9. ROCEPHIN [Suspect]
     Dates: end: 20100924

REACTIONS (3)
  - SPUTUM INCREASED [None]
  - PYREXIA [None]
  - COUGH [None]
